FAERS Safety Report 18456456 (Version 3)
Quarter: 2021Q1

REPORT INFORMATION
  Report Type: Report from Study
  Country: None (occurrence: CL)
  Receive Date: 20201103
  Receipt Date: 20210210
  Transmission Date: 20210419
  Serious: Yes (Other)
  Sender: FDA-Public Use
  Company Number: CL-ABBVIE-20K-034-3633118-00

PATIENT
  Age: 67 Year
  Sex: Female

DRUGS (20)
  1. LEFLUNOMIDE. [Concomitant]
     Active Substance: LEFLUNOMIDE
  2. HUMIRA [Suspect]
     Active Substance: ADALIMUMAB
     Route: 058
  3. PLAQUINOL [Concomitant]
     Active Substance: HYDROXYCHLOROQUINE SULFATE
  4. LEFLUNOMIDE. [Concomitant]
     Active Substance: LEFLUNOMIDE
     Indication: PRODUCT USED FOR UNKNOWN INDICATION
     Dates: end: 20210128
  5. METHOTREXATE. [Concomitant]
     Active Substance: METHOTREXATE
     Indication: PRODUCT USED FOR UNKNOWN INDICATION
     Dates: end: 20210128
  6. REUMAZINE [Concomitant]
     Indication: PRODUCT USED FOR UNKNOWN INDICATION
     Dates: end: 20210128
  7. PLAQUINOL [Concomitant]
     Active Substance: HYDROXYCHLOROQUINE SULFATE
     Indication: PRODUCT USED FOR UNKNOWN INDICATION
     Dates: end: 20210128
  8. PREDNISONE. [Concomitant]
     Active Substance: PREDNISONE
     Indication: PRODUCT USED FOR UNKNOWN INDICATION
     Dates: end: 20210128
  9. FOLIC ACID. [Concomitant]
     Active Substance: FOLIC ACID
     Indication: PRODUCT USED FOR UNKNOWN INDICATION
     Dates: end: 20210128
  10. CALCIUM [Concomitant]
     Active Substance: CALCIUM
     Indication: PRODUCT USED FOR UNKNOWN INDICATION
     Dates: end: 20210128
  11. PARACETAMOL [Concomitant]
     Active Substance: ACETAMINOPHEN
  12. CELEBRA [Concomitant]
     Active Substance: CELECOXIB
  13. FOLIC ACID. [Concomitant]
     Active Substance: FOLIC ACID
  14. CALCIUM [Concomitant]
     Active Substance: CALCIUM
  15. METHOTREXATE. [Concomitant]
     Active Substance: METHOTREXATE
     Dates: end: 20210128
  16. REUMAZINE [Concomitant]
  17. HUMIRA [Suspect]
     Active Substance: ADALIMUMAB
     Indication: RHEUMATOID ARTHRITIS
     Route: 058
     Dates: start: 20180907
  18. PARACETAMOL [Concomitant]
     Active Substance: ACETAMINOPHEN
     Indication: PRODUCT USED FOR UNKNOWN INDICATION
     Dates: end: 20210128
  19. CELEBRA [Concomitant]
     Active Substance: CELECOXIB
     Indication: PRODUCT USED FOR UNKNOWN INDICATION
     Dates: end: 20210128
  20. PREDNISONE. [Concomitant]
     Active Substance: PREDNISONE

REACTIONS (8)
  - Cataract [Recovering/Resolving]
  - Eye pain [Not Recovered/Not Resolved]
  - Mental disorder [Not Recovered/Not Resolved]
  - Retinal detachment [Not Recovered/Not Resolved]
  - Social avoidant behaviour [Unknown]
  - Dry eye [Not Recovered/Not Resolved]
  - Anxiety [Not Recovered/Not Resolved]
  - Panic attack [Not Recovered/Not Resolved]

NARRATIVE: CASE EVENT DATE: 2019
